FAERS Safety Report 23264837 (Version 1)
Quarter: 2023Q4

REPORT INFORMATION
  Report Type: Spontaneous
  Country: US (occurrence: US)
  Receive Date: 20231206
  Receipt Date: 20231206
  Transmission Date: 20240109
  Serious: No
  Sender: FDA-Public Use
  Company Number: US-AMGEN-USASP2023214252

PATIENT
  Age: 62 Year
  Sex: Male

DRUGS (4)
  1. XGEVA [Suspect]
     Active Substance: DENOSUMAB
     Indication: Hypercalcaemia
     Dosage: UNK
     Route: 065
  2. COLCHICINE [Concomitant]
     Active Substance: COLCHICINE
     Indication: Gout
  3. FEBUXOSTAT [Concomitant]
     Active Substance: FEBUXOSTAT
     Indication: Localised infection
     Dosage: 80 MILLIGRAM, QD
     Route: 065
  4. PEGLOTICASE [Concomitant]
     Active Substance: PEGLOTICASE
     Indication: Blood uric acid increased
     Dosage: 8 MILLIGRAM, Q2WK
     Route: 042

REACTIONS (5)
  - Hypercalcaemia [Unknown]
  - Blood uric acid increased [Unknown]
  - Gouty tophus [Recovering/Resolving]
  - Drug ineffective for unapproved indication [Unknown]
  - Off label use [Unknown]
